FAERS Safety Report 7897752-5 (Version None)
Quarter: 2011Q4

REPORT INFORMATION
  Report Type: 
  Country: None (occurrence: None)
  Receive Date: 20111107
  Receipt Date: 20110922
  Transmission Date: 20120403
  Serious: Yes (Hospitalization)
  Sender: FDA-Public Use
  Company Number: US-ROCHE-804243

PATIENT
  Sex: Male
  Weight: 63 kg

DRUGS (4)
  1. RIBAVIRIN [Suspect]
     Indication: HEPATITIS C
     Dosage: FREQUENCY: EVERY OTHER DAY.
     Route: 048
  2. PEGASYS [Suspect]
     Indication: HEPATITIS C
     Dosage: FREQUENCY: WEEKLY.
     Route: 048
  3. EPIVIR [Concomitant]
  4. RISPERIDONE [Concomitant]

REACTIONS (2)
  - INFECTIOUS PERITONITIS [None]
  - HALLUCINATIONS, MIXED [None]
